FAERS Safety Report 5712749-9 (Version None)
Quarter: 2008Q2

REPORT INFORMATION
  Report Type: 
  Country: None (occurrence: None)
  Receive Date: 20080421
  Receipt Date: 20080421
  Transmission Date: 20081010
  Serious: No
  Sender: FDA-Public Use
  Company Number: None

PATIENT
  Age: 45 Year
  Sex: Female
  Weight: 52.1637 kg

DRUGS (1)
  1. KENALOG [Suspect]
     Indication: DERMATITIS CONTACT
     Dosage: 40 MG ONE TIME IM
     Route: 030

REACTIONS (2)
  - INJECTION SITE INDURATION [None]
  - INJECTION SITE PAIN [None]
